FAERS Safety Report 6781148-3 (Version None)
Quarter: 2010Q2

REPORT INFORMATION
  Report Type: 
  Country: None (occurrence: None)
  Receive Date: 20100617
  Receipt Date: 20100617
  Transmission Date: 20101027
  Serious: Yes (Life-Threatening, Other)
  Sender: FDA-Public Use
  Company Number: None

PATIENT
  Sex: Female

DRUGS (1)
  1. ICEY - HOT PAIN RELIEVING CREAM [Suspect]
     Indication: PAIN
     Dosage: WAS NOT USED BY ME-USED BY HUSBAND; USED ON HUSBAND, I DID NOT EVEN TOUCH IT

REACTIONS (1)
  - VISUAL IMPAIRMENT [None]
